FAERS Safety Report 12253895 (Version 4)
Quarter: 2016Q2

REPORT INFORMATION
  Report Type: Spontaneous
  Country: US (occurrence: US)
  Receive Date: 20160411
  Receipt Date: 20160629
  Transmission Date: 20160815
  Serious: Yes (Other)
  Sender: FDA-Public Use
  Company Number: US-PFIZER INC-2016196560

PATIENT
  Age: 79 Year
  Sex: Female
  Weight: 59 kg

DRUGS (4)
  1. VORICONAZOLE. [Suspect]
     Active Substance: VORICONAZOLE
     Dosage: UNK
  2. VITAMIN B6 [Concomitant]
     Active Substance: PYRIDOXINE HYDROCHLORIDE
     Indication: VITAMIN B6 DEFICIENCY
     Dosage: UNK
     Dates: start: 2015
  3. VFEND [Suspect]
     Active Substance: VORICONAZOLE
     Indication: BRONCHOPULMONARY ASPERGILLOSIS
     Dosage: 200MG, EVERY 12 HOURS
     Route: 048
     Dates: start: 2015, end: 201603
  4. VITAMIN D /00107901/ [Concomitant]
     Active Substance: ERGOCALCIFEROL
     Indication: VITAMIN D DEFICIENCY
     Dosage: UNK
     Dates: start: 2015

REACTIONS (5)
  - Retinal vein occlusion [Unknown]
  - Visual acuity reduced [Not Recovered/Not Resolved]
  - Visual impairment [Unknown]
  - Blindness [Unknown]
  - Chromatopsia [Unknown]

NARRATIVE: CASE EVENT DATE: 2015
